FAERS Safety Report 22298115 (Version 1)
Quarter: 2023Q2

REPORT INFORMATION
  Report Type: Report from Study
  Country: BR (occurrence: BR)
  Receive Date: 20230509
  Receipt Date: 20230509
  Transmission Date: 20230721
  Serious: Yes (Other)
  Sender: FDA-Public Use
  Company Number: BR-UCBSA-2023022963

PATIENT
  Sex: Female

DRUGS (6)
  1. KEPPRA [Suspect]
     Active Substance: LEVETIRACETAM
     Indication: Syncope
     Dosage: 750 MILLIGRAM, 3X/DAY (TID)
     Route: 048
     Dates: start: 20220501
  2. TOPIRAMATE [Suspect]
     Active Substance: TOPIRAMATE
     Indication: Weight decreased
     Dosage: UNK
  3. TOPIRAMATE [Suspect]
     Active Substance: TOPIRAMATE
     Indication: Syncope
  4. PREDNISONE [Concomitant]
     Active Substance: PREDNISONE
     Indication: Hormone therapy
     Dosage: ONE IN THE MORNING AND HALF IN THE EVENING
  5. SPIRONOLACTONE [Concomitant]
     Active Substance: SPIRONOLACTONE
     Indication: Obesity
     Dosage: 100 MILLIGRAM, ONE PILL A DAY
  6. SIMVASTATIN [Concomitant]
     Active Substance: SIMVASTATIN
     Indication: Blood cholesterol
     Dosage: 20 MILLIGRAM,ONE PILL AT NIGHT

REACTIONS (7)
  - Near death experience [Unknown]
  - Decreased appetite [Unknown]
  - Crying [Unknown]
  - Abnormal behaviour [Unknown]
  - Staring [Unknown]
  - Product availability issue [Unknown]
  - Off label use [Unknown]
